FAERS Safety Report 9709187 (Version 1)
Quarter: 2013Q4

REPORT INFORMATION
  Report Type: Spontaneous
  Country: US (occurrence: US)
  Receive Date: 20131125
  Receipt Date: 20131125
  Transmission Date: 20140711
  Serious: Yes (Other)
  Sender: FDA-Public Use
  Company Number: US-BAXTER-2013BAX046943

PATIENT
  Sex: Male

DRUGS (2)
  1. VANCOMYCIN INJECTION, USP [Suspect]
     Indication: PYREXIA
  2. VANCOMYCIN INJECTION, USP [Suspect]
     Indication: NEUTROPENIA

REACTIONS (1)
  - Red man syndrome [Unknown]
